FAERS Safety Report 25098516 (Version 2)
Quarter: 2025Q2

REPORT INFORMATION
  Report Type: Spontaneous
  Country: US (occurrence: US)
  Receive Date: 20250320
  Receipt Date: 20250408
  Transmission Date: 20250717
  Serious: No
  Sender: Haleon PLC
  Company Number: US-HALEON-2233886

PATIENT

DRUGS (2)
  1. NICORETTE ORIGINAL [Suspect]
     Active Substance: NICOTINE
     Indication: Product used for unknown indication
  2. NICORETTE ORIGINAL [Suspect]
     Active Substance: NICOTINE

REACTIONS (3)
  - Oral discomfort [Unknown]
  - Product physical issue [Unknown]
  - Drug effect less than expected [Unknown]
